FAERS Safety Report 12330949 (Version 1)
Quarter: 2016Q2

REPORT INFORMATION
  Report Type: Spontaneous
  Country: GB (occurrence: GB)
  Receive Date: 20160504
  Receipt Date: 20160504
  Transmission Date: 20160815
  Serious: Yes (Other)
  Sender: FDA-Public Use
  Company Number: GB-BAYER-2016-080030

PATIENT
  Age: 27 Year
  Sex: Male

DRUGS (3)
  1. CIPROFLOXACIN. [Suspect]
     Active Substance: CIPROFLOXACIN
     Indication: INFECTION
     Dosage: UNK
     Dates: start: 20150219, end: 20150223
  2. DICLOFENAC [Concomitant]
     Active Substance: DICLOFENAC
     Dosage: UNK
  3. IBUPROFEN. [Concomitant]
     Active Substance: IBUPROFEN
     Dosage: UNK

REACTIONS (10)
  - Gastrointestinal disorder [Recovering/Resolving]
  - Arthralgia [Recovering/Resolving]
  - Insomnia [Recovering/Resolving]
  - Vertigo [Recovering/Resolving]
  - Nephrolithiasis [Recovering/Resolving]
  - Decreased appetite [Not Recovered/Not Resolved]
  - Confusional state [Recovering/Resolving]
  - Skin haemorrhage [Recovering/Resolving]
  - Skin wrinkling [Recovering/Resolving]
  - Bone density decreased [Recovering/Resolving]
